FAERS Safety Report 22093235 (Version 1)
Quarter: 2023Q1

REPORT INFORMATION
  Report Type: Spontaneous
  Country: DE (occurrence: DE)
  Receive Date: 20230314
  Receipt Date: 20230314
  Transmission Date: 20230418
  Serious: Yes (Life-Threatening)
  Sender: FDA-Public Use
  Company Number: None

PATIENT
  Sex: Male
  Weight: 115 kg

DRUGS (14)
  1. JARDIANCE [Suspect]
     Active Substance: EMPAGLIFLOZIN
     Indication: Product used for unknown indication
  2. GABAPENTIN [Concomitant]
     Active Substance: GABAPENTIN
     Indication: Product used for unknown indication
  3. Torasemid 5 [Concomitant]
     Indication: Product used for unknown indication
  4. OXYCODONE [Concomitant]
     Active Substance: OXYCODONE
     Indication: Product used for unknown indication
  5. TAMSULOSIN HYDROCHLORIDE [Concomitant]
     Active Substance: TAMSULOSIN HYDROCHLORIDE
     Indication: Product used for unknown indication
  6. Irbesartan 150 [Concomitant]
     Indication: Product used for unknown indication
  7. NEXIUM [Concomitant]
     Active Substance: ESOMEPRAZOLE MAGNESIUM
     Indication: Product used for unknown indication
     Dosage: AT BEDTIME
  8. CARVEDILOL [Concomitant]
     Active Substance: CARVEDILOL
     Indication: Product used for unknown indication
  9. VITAMIN B12 [Concomitant]
     Active Substance: CYANOCOBALAMIN
     Indication: Product used for unknown indication
     Dosage: 1/4 WEEK
  10. ASPIRIN [Concomitant]
     Active Substance: ASPIRIN
     Indication: Product used for unknown indication
     Dosage: 1-0-0
  11. Solaraze 3% [Concomitant]
     Indication: Product used for unknown indication
     Dosage: DAILY USE ON HANDS AND FACE
  12. Ursofalk 250 [Concomitant]
     Indication: Product used for unknown indication
  13. Atozet 10/40 [Concomitant]
     Indication: Product used for unknown indication
  14. Allopurinol 150 [Concomitant]
     Indication: Product used for unknown indication

REACTIONS (4)
  - Dyspnoea [Not Recovered/Not Resolved]
  - Tachycardia [Recovering/Resolving]
  - Oedema peripheral [Recovering/Resolving]
  - Fatigue [Not Recovered/Not Resolved]
